FAERS Safety Report 4425232-8 (Version None)
Quarter: 2004Q3

REPORT INFORMATION
  Report Type: 
  Country: None (occurrence: None)
  Receive Date: 20040810
  Receipt Date: 20040729
  Transmission Date: 20050211
  Serious: Yes (Other)
  Sender: FDA-Public Use
  Company Number: 2004226278US

PATIENT
  Age: 64 Year
  Sex: Female

DRUGS (2)
  1. PROVERA [Suspect]
     Dates: start: 19930101, end: 20020701
  2. PREMARIN [Suspect]
     Dates: start: 19930101, end: 20020701

REACTIONS (2)
  - BREAST CANCER IN SITU [None]
  - POSTOPERATIVE INFECTION [None]
